FAERS Safety Report 9110375 (Version 1)
Quarter: 2013Q1

REPORT INFORMATION
  Report Type: Spontaneous
  Country: US (occurrence: US)
  Receive Date: 20130219
  Receipt Date: 20130219
  Transmission Date: 20140127
  Serious: No
  Sender: FDA-Public Use
  Company Number: US-BRISTOL-MYERS SQUIBB COMPANY-16577678

PATIENT
  Age: 49 Year
  Sex: Female

DRUGS (3)
  1. ORENCIA [Suspect]
     Dosage: 1DF:2 INFUSIONS/MONTH TO 1 INFUSION/MONTH?7 INFUSIONS
     Route: 042
     Dates: start: 2011
  2. GABAPENTIN [Concomitant]
  3. FENTANYL PATCH [Concomitant]

REACTIONS (2)
  - Rheumatoid arthritis [Not Recovered/Not Resolved]
  - Migraine [Not Recovered/Not Resolved]
